FAERS Safety Report 6977421-6 (Version None)
Quarter: 2010Q3

REPORT INFORMATION
  Report Type: 
  Country: None (occurrence: None)
  Receive Date: 20100910
  Receipt Date: 20100901
  Transmission Date: 20110219
  Serious: Yes (Other)
  Sender: FDA-Public Use
  Company Number: CH-ABBOTT-10P-151-0662718-00

PATIENT
  Sex: Female
  Weight: 36 kg

DRUGS (4)
  1. LEUPROLIDE ACETATE [Suspect]
     Indication: PRECOCIOUS PUBERTY
     Dates: end: 20100810
  2. LEUPROLIDE ACETATE [Suspect]
     Indication: MENSTRUATION DELAYED
     Dates: start: 20100119, end: 20100119
  3. LEUPROLIDE ACETATE [Suspect]
     Dates: start: 20100408, end: 20100408
  4. LEUPROLIDE ACETATE [Suspect]
     Dates: start: 20100625, end: 20100625

REACTIONS (6)
  - CONTUSION [None]
  - FALL [None]
  - OEDEMA PERIPHERAL [None]
  - PAIN IN EXTREMITY [None]
  - RADIUS FRACTURE [None]
  - TIBIA FRACTURE [None]
